FAERS Safety Report 14230543 (Version 1)
Quarter: 2017Q4

REPORT INFORMATION
  Report Type: Spontaneous
  Country: US (occurrence: US)
  Receive Date: 20171128
  Receipt Date: 20171128
  Transmission Date: 20180321
  Serious: Yes (Hospitalization, Other)
  Sender: FDA-Public Use
  Company Number: US-ANTARES PHARMA, INC.-2017-LIT-ME-0390

PATIENT
  Age: 60 Year
  Sex: Male

DRUGS (2)
  1. METHOTREXATE. [Suspect]
     Active Substance: METHOTREXATE
     Indication: LYMPHOMA
     Dosage: 8 G/M2, UNK
     Route: 042
  2. RITUXIMAB. [Concomitant]
     Active Substance: RITUXIMAB
     Indication: LYMPHOMA

REACTIONS (7)
  - Leukoencephalopathy [Recovered/Resolved]
  - Abnormal behaviour [Recovered/Resolved]
  - Brain herniation [Recovered/Resolved]
  - Brain oedema [Recovered/Resolved]
  - Mental impairment [Recovered/Resolved]
  - Aphasia [Recovered/Resolved]
  - Unresponsive to stimuli [Recovered/Resolved]
